FAERS Safety Report 6675072-4 (Version None)
Quarter: 2010Q2

REPORT INFORMATION
  Report Type: 
  Country: None (occurrence: None)
  Receive Date: 20100407
  Receipt Date: 20100323
  Transmission Date: 20101027
  Serious: Yes (Hospitalization)
  Sender: FDA-Public Use
  Company Number: 2009002824

PATIENT
  Age: 41 Year
  Sex: Male
  Weight: 53 kg

DRUGS (5)
  1. ERLOTINIB HYDROCHLORIDE [Suspect]
     Indication: LUNG ADENOCARCINOMA
     Dosage: 150 MG, QD, ORAL
     Route: 048
     Dates: start: 20090610, end: 20090729
  2. NAIXAN (NAPROXEN SODIUM) [Concomitant]
  3. OMEPRAZOLE [Concomitant]
  4. MYSLEE [Concomitant]
  5. BROCIN-CODEINE [Concomitant]

REACTIONS (2)
  - DECREASED APPETITE [None]
  - ORAL HERPES [None]
